FAERS Safety Report 5679755-4 (Version None)
Quarter: 2008Q1

REPORT INFORMATION
  Report Type: 
  Country: None (occurrence: None)
  Receive Date: 20080324
  Receipt Date: 20080314
  Transmission Date: 20080703
  Serious: Yes (Other)
  Sender: FDA-Public Use
  Company Number: 163-20785-08031117

PATIENT
  Age: 63 Year
  Sex: Male

DRUGS (1)
  1. THALOMID [Suspect]
     Indication: MULTIPLE MYELOMA
     Dosage: 100 MG, 1 IN 1 D, ORAL
     Route: 048
     Dates: start: 20070807, end: 20070901

REACTIONS (4)
  - COGNITIVE DISORDER [None]
  - EATING DISORDER [None]
  - IMPAIRED DRIVING ABILITY [None]
  - SLEEP DISORDER [None]
